FAERS Safety Report 5726363-2 (Version None)
Quarter: 2008Q2

REPORT INFORMATION
  Report Type: 
  Country: None (occurrence: None)
  Receive Date: 20080502
  Receipt Date: 20080501
  Transmission Date: 20081010
  Serious: No
  Sender: FDA-Public Use
  Company Number: US-BAYER-200711223BCC

PATIENT
  Age: 4 Year
  Sex: Female
  Weight: 16 kg

DRUGS (6)
  1. RID SHAMPOO [Suspect]
     Indication: LICE INFESTATION
     Route: 061
     Dates: start: 20070418
  2. RID COMB OUT GEL [Suspect]
     Indication: LICE INFESTATION
     Route: 061
     Dates: start: 20070418
  3. RID SPRAY [Suspect]
     Indication: LICE INFESTATION
     Dates: start: 20070418
  4. RID COMB [Suspect]
     Indication: LICE INFESTATION
     Route: 061
     Dates: start: 20070418
  5. RID MOUSSE [Suspect]
     Indication: LICE INFESTATION
     Route: 061
     Dates: start: 20070423
  6. FLUORIDE TREATMENTS [Concomitant]

REACTIONS (2)
  - LICE INFESTATION [None]
  - PRURITUS [None]
